FAERS Safety Report 12230488 (Version 1)
Quarter: 2016Q2

REPORT INFORMATION
  Report Type: Spontaneous
  Country: US (occurrence: US)
  Receive Date: 20160401
  Receipt Date: 20160401
  Transmission Date: 20160815
  Serious: Yes (Hospitalization)
  Sender: FDA-Public Use
  Company Number: US-UNITED THERAPEUTICS-UNT-2016-004904

PATIENT
  Age: 36 Year
  Sex: Female
  Weight: 60.77 kg

DRUGS (2)
  1. COUMADIN [Concomitant]
     Active Substance: WARFARIN SODIUM
     Indication: PRODUCT USED FOR UNKNOWN INDICATION
  2. REMODULIN [Suspect]
     Active Substance: TREPROSTINIL
     Indication: PULMONARY ARTERIAL HYPERTENSION
     Dosage: 0.071 ?G/KG, CONTINUING
     Route: 041
     Dates: start: 20150316

REACTIONS (8)
  - Hypertension [Unknown]
  - Chest discomfort [Unknown]
  - Hypoaesthesia [Unknown]
  - Dizziness [Unknown]
  - Pneumonia [Unknown]
  - Nervous system disorder [Unknown]
  - Hypoaesthesia oral [Unknown]
  - Nausea [Unknown]

NARRATIVE: CASE EVENT DATE: 201603
